FAERS Safety Report 8317275-9 (Version None)
Quarter: 2012Q2

REPORT INFORMATION
  Report Type: 
  Country: None (occurrence: None)
  Receive Date: 20120427
  Receipt Date: 20120424
  Transmission Date: 20120825
  Serious: Yes (Hospitalization, Other)
  Sender: FDA-Public Use
  Company Number: US-AMGEN-USASP2012025951

PATIENT
  Sex: Female

DRUGS (1)
  1. EPOGEN [Suspect]
     Indication: PERITONEAL DIALYSIS
     Dosage: UNK

REACTIONS (6)
  - CARDIAC FAILURE CONGESTIVE [None]
  - HOSPITALISATION [None]
  - IRON OVERLOAD [None]
  - APLASTIC ANAEMIA [None]
  - ANTIBODY TEST POSITIVE [None]
  - INFECTIOUS PERITONITIS [None]
